FAERS Safety Report 21566964 (Version 2)
Quarter: 2022Q4

REPORT INFORMATION
  Report Type: Report from Study
  Country: US (occurrence: US)
  Receive Date: 20221108
  Receipt Date: 20221110
  Transmission Date: 20230113
  Serious: No
  Sender: FDA-Public Use
  Company Number: US-ABBVIE-4157461

PATIENT
  Age: 51 Year
  Sex: Female

DRUGS (32)
  1. RINVOQ [Suspect]
     Active Substance: UPADACITINIB
     Indication: Psoriasis
     Dosage: FORM STRENGTH -15 MILLIGRAMS
     Route: 048
     Dates: start: 20211217
  2. RINVOQ [Suspect]
     Active Substance: UPADACITINIB
     Indication: Psoriasis
     Dosage: FORM STRENGTH -15 MILLIGRAMS
     Route: 048
  3. OMEPRAZOLE [Concomitant]
     Active Substance: OMEPRAZOLE
     Indication: Product used for unknown indication
     Route: 048
  4. MELOXICAM [Concomitant]
     Active Substance: MELOXICAM
     Indication: Product used for unknown indication
     Route: 048
  5. ESTRADIOL CRE 0.01% [Concomitant]
     Indication: Product used for unknown indication
  6. LEVOTHYROXIN TAB 200MCG [Concomitant]
     Indication: Product used for unknown indication
     Route: 048
  7. HYDROXYCHLOROQUINE [Concomitant]
     Active Substance: HYDROXYCHLOROQUINE
     Indication: Product used for unknown indication
     Route: 048
  8. ATORVASTATIN [Concomitant]
     Active Substance: ATORVASTATIN
     Indication: Product used for unknown indication
     Route: 048
  9. NAPROXEN DR TAB 500MG [Concomitant]
     Indication: Product used for unknown indication
     Route: 048
  10. FENOFIBRATE [Concomitant]
     Active Substance: FENOFIBRATE
     Indication: Product used for unknown indication
     Route: 048
  11. SUPREP BOWEL SOL PREP KIT [Concomitant]
     Indication: Product used for unknown indication
  12. LEFLUNOMIDE [Concomitant]
     Active Substance: LEFLUNOMIDE
     Indication: Product used for unknown indication
     Route: 048
  13. KENALOG-10 [Concomitant]
     Active Substance: TRIAMCINOLONE ACETONIDE
     Indication: Product used for unknown indication
     Dosage: INJ 10MG/ML
  14. KENALOG-10 [Concomitant]
     Active Substance: TRIAMCINOLONE ACETONIDE
     Indication: Product used for unknown indication
     Dosage: INJ 10MG/ML
  15. VITAMIN D [Concomitant]
     Active Substance: VITAMIN D NOS
     Indication: Product used for unknown indication
     Route: 048
  16. METFORMIN [Concomitant]
     Active Substance: METFORMIN HYDROCHLORIDE
     Indication: Product used for unknown indication
     Route: 048
  17. METFORMIN [Concomitant]
     Active Substance: METFORMIN HYDROCHLORIDE
     Indication: Product used for unknown indication
     Route: 048
  18. LOSARTAN POTASSIUM [Concomitant]
     Active Substance: LOSARTAN POTASSIUM
     Indication: Product used for unknown indication
     Route: 048
  19. SM GENTLE TAB LAXATIVE; [Concomitant]
     Indication: Product used for unknown indication
  20. Mometasone CRE 0.1%; [Concomitant]
     Indication: Product used for unknown indication
  21. BIOTIN [Concomitant]
     Active Substance: BIOTIN
     Indication: Product used for unknown indication
     Route: 048
  22. TACROLIMUS [Concomitant]
     Active Substance: TACROLIMUS
     Indication: Product used for unknown indication
  23. ARMOUR THYRO [Concomitant]
     Indication: Product used for unknown indication
     Route: 048
  24. ARMOUR THYRO [Concomitant]
     Indication: Product used for unknown indication
     Route: 048
  25. KRILL OIL [Concomitant]
     Active Substance: DIETARY SUPPLEMENT\KRILL OIL
     Indication: Product used for unknown indication
     Route: 048
  26. METOPROL TAR [Concomitant]
     Indication: Product used for unknown indication
     Route: 048
  27. LEVOTHYROXINE [Concomitant]
     Active Substance: LEVOTHYROXINE
     Indication: Product used for unknown indication
     Route: 048
  28. CLOBETASOL AER [Concomitant]
     Indication: Product used for unknown indication
     Dosage: 0.05%
  29. CLOBETASOL AER [Concomitant]
     Indication: Product used for unknown indication
     Dosage: 0.05%
  30. METOPROL SUC [Concomitant]
     Indication: Product used for unknown indication
     Route: 048
  31. OMETASONE CRE 0.1%; [Concomitant]
     Indication: Product used for unknown indication
  32. PFIZER-BIONTECH COVID-19 VACCINE [Concomitant]
     Active Substance: TOZINAMERAN
     Indication: COVID-19 immunisation
     Route: 030

REACTIONS (1)
  - COVID-19 [Unknown]

NARRATIVE: CASE EVENT DATE: 20220901
